FAERS Safety Report 20367957 (Version 2)
Quarter: 2022Q1

REPORT INFORMATION
  Report Type: Spontaneous
  Country: TR (occurrence: TR)
  Receive Date: 20220124
  Receipt Date: 20220307
  Transmission Date: 20220424
  Serious: Yes (Hospitalization)
  Sender: FDA-Public Use
  Company Number: TR-NOVOPROD-883131

PATIENT
  Sex: Female
  Weight: 2.8 kg

DRUGS (4)
  1. LEVEMIR [Suspect]
     Active Substance: INSULIN DETEMIR
     Indication: Gestational diabetes
     Dosage: 4 IU, BID
     Route: 064
     Dates: end: 20211129
  2. ELEVIT [MINERALS NOS;VITAMINS NOS] [Concomitant]
     Dosage: UNK
     Route: 064
  3. CALCIMED [CALCIUM ASCORBATE] [Concomitant]
     Dosage: ONCE A DAY.
     Route: 064
  4. EFERMAG [Concomitant]
     Dosage: ONCE A DAY
     Route: 064

REACTIONS (2)
  - Neonatal respiratory failure [Recovered/Resolved]
  - Foetal exposure during pregnancy [Recovered/Resolved]

NARRATIVE: CASE EVENT DATE: 20211129
